FAERS Safety Report 7694094-8 (Version None)
Quarter: 2011Q3

REPORT INFORMATION
  Report Type: 
  Country: None (occurrence: None)
  Receive Date: 20110819
  Receipt Date: 20110809
  Transmission Date: 20111222
  Serious: Yes (Hospitalization)
  Sender: FDA-Public Use
  Company Number: CN-GENENTECH-322801

PATIENT
  Age: 62 Year
  Sex: Male
  Weight: 58 kg

DRUGS (3)
  1. CHOP REGIMEN [Concomitant]
     Indication: MANTLE CELL LYMPHOMA
     Dosage: UNK UNK, Q21D
     Dates: start: 20101223
  2. RITUXIMAB [Suspect]
     Indication: MANTLE CELL LYMPHOMA
     Dosage: 600 MG, Q3W
     Route: 041
     Dates: start: 20101223
  3. CHOP REGIMEN [Concomitant]
     Dosage: UNK UNK, Q21D

REACTIONS (2)
  - TUBERCULOUS PLEURISY [None]
  - LUNG INFECTION [None]
